FAERS Safety Report 13990637 (Version 2)
Quarter: 2017Q3

REPORT INFORMATION
  Report Type: Report from Study
  Country: DK (occurrence: DK)
  Receive Date: 20170920
  Receipt Date: 20170928
  Transmission Date: 20171128
  Serious: Yes (Hospitalization, Disabling, Other)
  Sender: FDA-Public Use
  Company Number: DK-PFIZER INC-2017400238

PATIENT
  Age: 2 Year
  Sex: Female
  Weight: 12 kg

DRUGS (5)
  1. BESPONSA [Suspect]
     Active Substance: INOTUZUMAB OZOGAMICIN
     Dosage: 0.5 MG/M2, WEEKLY
     Route: 042
     Dates: start: 20170818, end: 20170818
  2. BESPONSA [Suspect]
     Active Substance: INOTUZUMAB OZOGAMICIN
     Indication: ACUTE LYMPHOCYTIC LEUKAEMIA RECURRENT
     Dosage: 0.8 MG/M2, WEEKLY
     Route: 042
     Dates: start: 20170811, end: 20170811
  3. AMBISOME [Concomitant]
     Active Substance: AMPHOTERICIN B
     Indication: PROPHYLAXIS
     Dosage: 33 MG, 2X/WEEK (TWICE WEEKLY)
     Route: 042
     Dates: start: 20170816, end: 20170907
  4. BESPONSA [Suspect]
     Active Substance: INOTUZUMAB OZOGAMICIN
     Dosage: 0.5 MG/M2, WEEKLY
     Route: 042
     Dates: start: 20170825, end: 20170825
  5. MEROPENEM. [Concomitant]
     Active Substance: MEROPENEM
     Indication: INFECTION
     Dosage: 400 MG, 3X/DAY
     Route: 042
     Dates: start: 20170910, end: 20170925

REACTIONS (2)
  - Seizure [Recovering/Resolving]
  - Toxic encephalopathy [Not Recovered/Not Resolved]

NARRATIVE: CASE EVENT DATE: 20170911
